FAERS Safety Report 24324757 (Version 1)
Quarter: 2024Q3

REPORT INFORMATION
  Report Type: Spontaneous
  Country: US (occurrence: US)
  Receive Date: 20240916
  Receipt Date: 20240916
  Transmission Date: 20241016
  Serious: No
  Sender: PAREXEL
  Company Number: US-Stemline Therapeutics, Inc.-2024ST002201

PATIENT
  Age: 78 Year
  Sex: Female

DRUGS (2)
  1. ORSERDU [Suspect]
     Active Substance: ELACESTRANT
     Indication: Product used for unknown indication
     Dates: start: 20240305
  2. ORSERDU [Suspect]
     Active Substance: ELACESTRANT
     Dosage: THREE 86 MG PILLS
     Dates: start: 2024

REACTIONS (14)
  - Pain [Unknown]
  - Muscle spasms [Unknown]
  - Paraesthesia [Recovering/Resolving]
  - Neck pain [Recovering/Resolving]
  - Ear pain [Recovering/Resolving]
  - Oedema peripheral [Unknown]
  - Hepatic enzyme increased [Unknown]
  - Musculoskeletal pain [Recovering/Resolving]
  - Back pain [Unknown]
  - Headache [Unknown]
  - Arthralgia [Unknown]
  - Musculoskeletal pain [Unknown]
  - Asthenia [Unknown]
  - Pain in extremity [Unknown]

NARRATIVE: CASE EVENT DATE: 20240101
